FAERS Safety Report 20320562 (Version 5)
Quarter: 2022Q1

REPORT INFORMATION
  Report Type: Report from Study
  Country: US (occurrence: US)
  Receive Date: 20220111
  Receipt Date: 20220322
  Transmission Date: 20220423
  Serious: No
  Sender: FDA-Public Use
  Company Number: US-NOVARTISTESTPH-NVSC2022US004353

PATIENT
  Sex: Female

DRUGS (1)
  1. ENTRESTO [Suspect]
     Active Substance: SACUBITRIL\VALSARTAN
     Indication: Cardiac failure
     Dosage: UNK, BID
     Route: 048
     Dates: start: 202112

REACTIONS (10)
  - Peripheral swelling [Recovering/Resolving]
  - Dyspnoea [Not Recovered/Not Resolved]
  - Heart rate increased [Unknown]
  - Laryngitis [Recovering/Resolving]
  - Nasal congestion [Recovering/Resolving]
  - Feeling hot [Recovering/Resolving]
  - Fluid retention [Recovering/Resolving]
  - Cough [Recovered/Resolved]
  - Weight decreased [Recovering/Resolving]
  - Mobility decreased [Recovering/Resolving]
